FAERS Safety Report 16733336 (Version 1)
Quarter: 2019Q3

REPORT INFORMATION
  Report Type: Spontaneous
  Country: US (occurrence: US)
  Receive Date: 20190823
  Receipt Date: 20190823
  Transmission Date: 20191005
  Serious: No
  Sender: FDA-Public Use
  Company Number: US-ASTRAZENECA-2019SF09322

PATIENT
  Age: 27646 Day
  Sex: Female
  Weight: 74.4 kg

DRUGS (4)
  1. GLIPIZIDE. [Concomitant]
     Active Substance: GLIPIZIDE
     Indication: DIABETES MELLITUS
     Dosage: 10 MG IN THE MORNING AND GLIPIZIDE 5 MG AT NIGHT SINCE 15-20 YEARS AGO
     Route: 048
  2. PIOGLITAZONE. [Concomitant]
     Active Substance: PIOGLITAZONE
     Indication: DIABETES MELLITUS
     Dosage: 45.0MG UNKNOWN
     Route: 048
  3. BYETTA [Suspect]
     Active Substance: EXENATIDE
     Indication: TYPE 2 DIABETES MELLITUS
     Route: 058
  4. BYETTA [Suspect]
     Active Substance: EXENATIDE
     Indication: TYPE 2 DIABETES MELLITUS
     Route: 058

REACTIONS (8)
  - Scoliosis [Unknown]
  - Blood glucose increased [Not Recovered/Not Resolved]
  - Back pain [Unknown]
  - Product use issue [Unknown]
  - Glycosylated haemoglobin increased [Recovering/Resolving]
  - Sciatica [Unknown]
  - Blood glucose decreased [Recovered/Resolved]
  - Product dose omission [Recovered/Resolved]

NARRATIVE: CASE EVENT DATE: 20190725
